FAERS Safety Report 19005589 (Version 4)
Quarter: 2021Q2

REPORT INFORMATION
  Report Type: Report from Study
  Country: US (occurrence: US)
  Receive Date: 20210313
  Receipt Date: 20210609
  Transmission Date: 20210717
  Serious: No
  Sender: FDA-Public Use
  Company Number: NVSC2021US050739

PATIENT
  Age: 73 Year
  Sex: Male

DRUGS (2)
  1. ENTRESTO [Suspect]
     Active Substance: SACUBITRIL\VALSARTAN
     Indication: CARDIAC FAILURE
     Dosage: 24.26 MG, BID
     Route: 048
     Dates: start: 20210201
  2. ENTRESTO [Suspect]
     Active Substance: SACUBITRIL\VALSARTAN
     Indication: CARDIAC FAILURE

REACTIONS (10)
  - Throat clearing [Unknown]
  - Insomnia [Unknown]
  - Cough [Unknown]
  - Product dose omission issue [Unknown]
  - Blood glucose increased [Unknown]
  - Dyspnoea [Unknown]
  - Anxiety [Unknown]
  - Hypersensitivity [Unknown]
  - Energy increased [Unknown]
  - Product administration error [Unknown]

NARRATIVE: CASE EVENT DATE: 202102
